FAERS Safety Report 5492525-5 (Version None)
Quarter: 2007Q4

REPORT INFORMATION
  Report Type: 
  Country: None (occurrence: None)
  Receive Date: 20071022
  Receipt Date: 20071018
  Transmission Date: 20080405
  Serious: Yes (Other)
  Sender: FDA-Public Use
  Company Number: AU-SHR-AU-2007-039449

PATIENT
  Age: 21 Year
  Sex: Female

DRUGS (1)
  1. YASMIN 30 (21+7) [Suspect]
     Dosage: 1 TAB(S), UNK
     Route: 048

REACTIONS (1)
  - SUICIDAL IDEATION [None]
